FAERS Safety Report 8278121-5 (Version None)
Quarter: 2012Q2

REPORT INFORMATION
  Report Type: 
  Country: None (occurrence: None)
  Receive Date: 20120412
  Receipt Date: 20111202
  Transmission Date: 20120825
  Serious: No
  Sender: FDA-Public Use
  Company Number: US-ASTRAZENECA-2010SE06125

PATIENT
  Age: 65 Year
  Sex: Female

DRUGS (2)
  1. SEROQUEL [Suspect]
     Route: 048
  2. NEXIUM [Suspect]
     Route: 048

REACTIONS (5)
  - THROAT IRRITATION [None]
  - QUALITY OF LIFE DECREASED [None]
  - MALAISE [None]
  - DRUG INEFFECTIVE [None]
  - DYSPHAGIA [None]
